FAERS Safety Report 8519468-4 (Version None)
Quarter: 2012Q3

REPORT INFORMATION
  Report Type: 
  Country: None (occurrence: None)
  Receive Date: 20120718
  Receipt Date: 20120713
  Transmission Date: 20120928
  Serious: Yes (Congenital Anomaly, Other)
  Sender: FDA-Public Use
  Company Number: US-PFIZER INC-2012080626

PATIENT
  Sex: Female
  Weight: 2.9 kg

DRUGS (5)
  1. PHENOBARBITAL [Concomitant]
     Indication: CONVULSION
     Dosage: 60 MG, 3X/DAY
     Route: 064
     Dates: start: 20020801
  2. SYNTHROID [Concomitant]
     Indication: HYPOTHYROIDISM
     Dosage: 150 UG, UNK
     Route: 064
     Dates: start: 20020801
  3. TYLENOL [Concomitant]
     Dosage: UNK
     Route: 064
  4. COLACE [Concomitant]
     Dosage: UNK
     Route: 064
     Dates: start: 20020801
  5. ZOLOFT [Suspect]
     Indication: DEPRESSION
     Dosage: 100 MG DAILY
     Route: 064
     Dates: start: 20020801

REACTIONS (11)
  - WEIGHT GAIN POOR [None]
  - MATERNAL EXPOSURE TIMING UNSPECIFIED [None]
  - ATRIAL SEPTAL DEFECT [None]
  - TRUNCUS ARTERIOSUS PERSISTENT [None]
  - VENTRICULAR SEPTAL DEFECT [None]
  - PULMONARY VALVE STENOSIS [None]
  - SPLEEN MALFORMATION [None]
  - ATRIOVENTRICULAR SEPTAL DEFECT [None]
  - UNIVENTRICULAR HEART [None]
  - VENTRICULAR HYPERTROPHY [None]
  - CONGENITAL SCOLIOSIS [None]
